FAERS Safety Report 8114237-1 (Version None)
Quarter: 2012Q1

REPORT INFORMATION
  Report Type: 
  Country: None (occurrence: None)
  Receive Date: 20120206
  Receipt Date: 20120124
  Transmission Date: 20120608
  Serious: Yes (Other)
  Sender: FDA-Public Use
  Company Number: BR-AMGEN-BRASP2012006304

PATIENT
  Age: 56 Year
  Sex: Female
  Weight: 50 kg

DRUGS (3)
  1. ENBREL [Suspect]
     Indication: RHEUMATOID ARTHRITIS
     Dosage: 50 MG, WEEKLY
     Route: 058
     Dates: start: 20110601
  2. INSULIN [Concomitant]
     Dosage: 2X/DAY
  3. SCOPOLAMINE [Concomitant]
     Dosage: PRN

REACTIONS (5)
  - INTESTINAL STRANGULATION [None]
  - PAIN [None]
  - OEDEMA PERIPHERAL [None]
  - GAIT DISTURBANCE [None]
  - FLATULENCE [None]
